FAERS Safety Report 4558347-4 (Version None)
Quarter: 2005Q1

REPORT INFORMATION
  Report Type: 
  Country: None (occurrence: None)
  Receive Date: 20050121
  Receipt Date: 20050111
  Transmission Date: 20050727
  Serious: Yes (Other)
  Sender: FDA-Public Use
  Company Number: PHEH2005US00774

PATIENT
  Age: 34 Year
  Sex: Female

DRUGS (5)
  1. LOTREL [Suspect]
     Indication: HYPERTENSION
     Dosage: UNK, UNK
     Dates: start: 20050107
  2. PROTONIX [Concomitant]
  3. VICODIN ES [Concomitant]
  4. LOMOTIL [Concomitant]
  5. TIGAN [Concomitant]

REACTIONS (1)
  - DEPRESSION [None]
